FAERS Safety Report 10051015 (Version 2)
Quarter: 2014Q2

REPORT INFORMATION
  Report Type: Spontaneous
  Country: SI (occurrence: SI)
  Receive Date: 20140401
  Receipt Date: 20140529
  Transmission Date: 20141212
  Serious: Yes (Hospitalization)
  Sender: FDA-Public Use
  Company Number: SI-INCYTE CORPORATION-2014IN000793

PATIENT
  Age: 62 Year
  Sex: Male
  Weight: 65 kg

DRUGS (3)
  1. JAKAVI [Suspect]
     Indication: MYELOFIBROSIS
     Dosage: 20 MG, BID
     Route: 048
     Dates: start: 20140121, end: 20140307
  2. PRENESSA [Concomitant]
     Indication: HYPERTENSION
     Dosage: UNK
  3. CONCOR [Concomitant]
     Dosage: UNK

REACTIONS (3)
  - Respiratory tract infection [Recovering/Resolving]
  - Tuberculosis [Recovering/Resolving]
  - Respiratory failure [Recovered/Resolved]
